FAERS Safety Report 4722861-9 (Version None)
Quarter: 2005Q3

REPORT INFORMATION
  Report Type: 
  Country: None (occurrence: None)
  Receive Date: 20050722
  Receipt Date: 20050719
  Transmission Date: 20060218
  Serious: Yes (Other)
  Sender: FDA-Public Use
  Company Number: 410040

PATIENT
  Sex: Male

DRUGS (3)
  1. DILATREND [Suspect]
     Indication: DRUG USE FOR UNKNOWN INDICATION
     Dosage: 12.5MG UNKNOWN
     Route: 048
     Dates: start: 20050509
  2. VENTOLIN [Concomitant]
     Route: 055
  3. SYMBICORT [Concomitant]
     Route: 055

REACTIONS (2)
  - ASTHMA [None]
  - BRONCHITIS [None]
